FAERS Safety Report 8078600-X (Version None)
Quarter: 2012Q1

REPORT INFORMATION
  Report Type: 
  Country: None (occurrence: None)
  Receive Date: 20120124
  Receipt Date: 20120110
  Transmission Date: 20120608
  Serious: Yes (Other)
  Sender: FDA-Public Use
  Company Number: DKLU1075570

PATIENT
  Age: 35 Year
  Sex: Female

DRUGS (4)
  1. TOPIRAMATE [Suspect]
     Indication: CONVULSION
  2. CARBAMAZEPINE [Suspect]
     Indication: CONVULSION
     Dosage: 200 MG MILLIGRAMS, 2 IN 1 D,
  3. LAMOTRIGINE [Concomitant]
  4. ONFI [Suspect]
     Indication: CONVULSION
     Dosage: 10 MG MILLIGRAMS, 1 IN 1 D

REACTIONS (16)
  - MEMORY IMPAIRMENT [None]
  - SLOW SPEECH [None]
  - URINARY INCONTINENCE [None]
  - SELF ESTEEM DECREASED [None]
  - DRUG HYPERSENSITIVITY [None]
  - DIPLOPIA [None]
  - ANXIETY [None]
  - PRURITUS [None]
  - DRUG INEFFECTIVE [None]
  - CONVULSION [None]
  - FATIGUE [None]
  - TEARFULNESS [None]
  - STEVENS-JOHNSON SYNDROME [None]
  - AURA [None]
  - RASH [None]
  - BLISTER [None]
